FAERS Safety Report 20942873 (Version 1)
Quarter: 2022Q2

REPORT INFORMATION
  Report Type: Spontaneous
  Country: CN (occurrence: CN)
  Receive Date: 20220610
  Receipt Date: 20220610
  Transmission Date: 20220721
  Serious: No
  Sender: FDA-Public Use
  Company Number: CN-LUPIN PHARMACEUTICALS INC.-2022-08287

PATIENT
  Age: 24 Year
  Sex: Female

DRUGS (5)
  1. CALCIUM [Suspect]
     Active Substance: CALCIUM
     Indication: Mineral supplementation
     Dosage: 3.5 GRAM, QD
     Route: 048
  2. CALCIUM [Suspect]
     Active Substance: CALCIUM
     Dosage: 7.5 GRAM, QD
     Route: 048
  3. CALCITONIN SALMON [Suspect]
     Active Substance: CALCITONIN SALMON
     Indication: Hypercalcaemia
     Dosage: UNK
     Route: 065
  4. POTASSIUM [Suspect]
     Active Substance: POTASSIUM
     Indication: Symptomatic treatment
     Dosage: UNK
     Route: 042
  5. IRON [Suspect]
     Active Substance: IRON
     Indication: Symptomatic treatment
     Dosage: UNK
     Route: 042

REACTIONS (2)
  - Maternal exposure during pregnancy [Unknown]
  - Normal newborn [Unknown]
